FAERS Safety Report 4555091-4 (Version None)
Quarter: 2004Q4

REPORT INFORMATION
  Report Type: 
  Country: None (occurrence: None)
  Receive Date: 20041217
  Receipt Date: 20040806
  Transmission Date: 20050328
  Serious: No
  Sender: FDA-Public Use
  Company Number: 2004-BP-05387BP

PATIENT
  Age: 76 Year
  Sex: Female

DRUGS (8)
  1. SPIRIVA [Suspect]
     Indication: CHRONIC OBSTRUCTIVE AIRWAYS DISEASE
     Dosage: 18 MCG (18 MCG, 1 CAP OD), IH
     Route: 055
     Dates: start: 20040621
  2. ALBUTEROL [Concomitant]
  3. THEOPHYLLINE [Concomitant]
  4. LORADIL [Concomitant]
  5. SINGULAIR [Concomitant]
  6. INSULIN [Concomitant]
  7. FUROSEMIDE (FUROSEMIDE) [Concomitant]
  8. POTASSIUM CHLORIDE [Concomitant]

REACTIONS (3)
  - DYSPNOEA EXERTIONAL [None]
  - FLATULENCE [None]
  - FREQUENT BOWEL MOVEMENTS [None]
